FAERS Safety Report 13912863 (Version 1)
Quarter: 2017Q3

REPORT INFORMATION
  Report Type: Spontaneous
  Country: US (occurrence: US)
  Receive Date: 20170828
  Receipt Date: 20170828
  Transmission Date: 20171127
  Serious: Yes (Death, Hospitalization, Other)
  Sender: FDA-Public Use
  Company Number: PHHY2017US126428

PATIENT
  Age: 86 Year
  Sex: Male

DRUGS (2)
  1. APIXABAN [Interacting]
     Active Substance: APIXABAN
     Indication: ATRIAL FIBRILLATION
     Route: 065
  2. AMIODARONE [Suspect]
     Active Substance: AMIODARONE
     Indication: ATRIAL FIBRILLATION
     Route: 065

REACTIONS (6)
  - Dyspnoea exertional [Fatal]
  - Haemoglobin decreased [Fatal]
  - Oxygen saturation decreased [Fatal]
  - Haemoptysis [Fatal]
  - Pulmonary alveolar haemorrhage [Fatal]
  - Drug interaction [Unknown]
